FAERS Safety Report 7095341-6 (Version None)
Quarter: 2010Q4

REPORT INFORMATION
  Report Type: 
  Country: None (occurrence: None)
  Receive Date: 20101018
  Receipt Date: 20100525
  Transmission Date: 20110411
  Serious: Yes (Other)
  Sender: FDA-Public Use
  Company Number: US-WYE-H15353810

PATIENT
  Age: 63 Year
  Sex: Female
  Weight: 63.56 kg

DRUGS (3)
  1. PREMARIN [Suspect]
     Indication: HORMONE REPLACEMENT THERAPY
     Dosage: 0.3 MG 1X PER 1 DAY,
     Dates: start: 20020101
  2. EVISTA [Suspect]
     Indication: HORMONE REPLACEMENT THERAPY
     Dates: start: 20070201
  3. PROGESTERONE [Suspect]
     Indication: HORMONE REPLACEMENT THERAPY
     Dosage: 200MG;

REACTIONS (3)
  - DERMATITIS CONTACT [None]
  - DIVERTICULITIS [None]
  - ENDOMETRIAL CANCER [None]
